FAERS Safety Report 7418165-6 (Version None)
Quarter: 2011Q2

REPORT INFORMATION
  Report Type: 
  Country: None (occurrence: None)
  Receive Date: 20110415
  Receipt Date: 20110331
  Transmission Date: 20111010
  Serious: Yes (Death, Other)
  Sender: FDA-Public Use
  Company Number: JP-CELGENEUS-087-21880-11020523

PATIENT
  Sex: Female

DRUGS (6)
  1. BAKTAR [Concomitant]
     Indication: PROPHYLAXIS
     Dosage: 1 MILLIGRAM
     Route: 048
     Dates: start: 20100801, end: 20101112
  2. REVLIMID [Suspect]
     Indication: MULTIPLE MYELOMA
     Dosage: 15 MILLIGRAM
     Route: 048
     Dates: start: 20101104, end: 20101105
  3. LENDEM [Concomitant]
     Indication: PROPHYLAXIS
     Dosage: .25 MILLIGRAM
     Route: 048
     Dates: start: 20100801, end: 20101112
  4. ALDACTONE [Concomitant]
     Dosage: 25 MILLIGRAM
     Route: 048
     Dates: start: 20100801, end: 20101112
  5. PARIET [Concomitant]
     Dosage: 10 MILLIGRAM
     Route: 048
     Dates: start: 20100801, end: 20101112
  6. LASIX [Concomitant]
     Indication: PROPHYLAXIS
     Dosage: 40 MILLIGRAM
     Route: 048
     Dates: start: 20100801, end: 20101112

REACTIONS (6)
  - NEUTROPENIA [None]
  - MULTIPLE MYELOMA [None]
  - THROMBOCYTOPENIA [None]
  - PNEUMONIA [None]
  - RENAL FAILURE [None]
  - CEREBRAL HAEMORRHAGE [None]
